FAERS Safety Report 7702255-4 (Version None)
Quarter: 2011Q3

REPORT INFORMATION
  Report Type: 
  Country: None (occurrence: None)
  Receive Date: 20110822
  Receipt Date: 20110512
  Transmission Date: 20111222
  Serious: Yes (Death, Other)
  Sender: FDA-Public Use
  Company Number: US-ASTRAZENECA-2011SE23720

PATIENT
  Age: 43 Year
  Sex: Male

DRUGS (9)
  1. SEROQUEL [Suspect]
     Indication: AGITATION
     Route: 048
  2. SEROQUEL [Suspect]
     Dosage: 50 MG WAS TITRATED UP AND DOWN ON DOSES OF 400 MG, 300 MG AM AND 50 AT NIGHT, 600 MG UPTO 1200 MG
     Route: 048
     Dates: start: 20090917, end: 20100223
  3. CLARITIN [Concomitant]
  4. SEROQUEL [Suspect]
     Route: 048
  5. SEROQUEL [Suspect]
     Route: 048
  6. SEROQUEL [Suspect]
     Route: 048
  7. SEROQUEL [Suspect]
     Indication: AFFECTIVE DISORDER
     Route: 048
  8. SEROQUEL [Suspect]
     Route: 048
  9. SEROQUEL [Suspect]
     Dosage: 50 MG WAS TITRATED UP AND DOWN ON DOSES OF 400 MG, 300 MG AM AND 50 AT NIGHT, 600 MG UPTO 1200 MG
     Route: 048
     Dates: start: 20090917, end: 20100223

REACTIONS (4)
  - TARDIVE DYSKINESIA [None]
  - ASPHYXIA [None]
  - CHOKING [None]
  - BRAIN INJURY [None]
